FAERS Safety Report 5162190-5 (Version None)
Quarter: 2006Q4

REPORT INFORMATION
  Report Type: 
  Country: None (occurrence: None)
  Receive Date: 20061121
  Receipt Date: 20061109
  Transmission Date: 20070319
  Serious: Yes (Other)
  Sender: FDA-Public Use
  Company Number: PL-SOLVAY-00306003681

PATIENT
  Age: 35 Year
  Sex: Male

DRUGS (2)
  1. MESALAMINE [Suspect]
     Indication: COLITIS ULCERATIVE
  2. SULFASALAZINE [Suspect]
     Indication: ILL-DEFINED DISORDER

REACTIONS (1)
  - LUNG DISORDER [None]
